FAERS Safety Report 24679325 (Version 1)
Quarter: 2024Q4

REPORT INFORMATION
  Report Type: Spontaneous
  Country: CA (occurrence: CA)
  Receive Date: 20241129
  Receipt Date: 20241129
  Transmission Date: 20250115
  Serious: Yes (Other)
  Sender: RANBAXY
  Company Number: CA-SUN PHARMACEUTICAL INDUSTRIES LTD-2024R1-481752

PATIENT
  Age: 10 Year
  Sex: Male

DRUGS (3)
  1. PREDNISONE [Suspect]
     Active Substance: PREDNISONE
     Indication: Lymphangioma
     Dosage: 1 MILLIGRAM/KILOGRAM, DAILY
     Route: 065
  2. PROPRANOLOL [Suspect]
     Active Substance: PROPRANOLOL HYDROCHLORIDE
     Indication: Lymphangioma
     Dosage: 1 MILLIGRAM/KILOGRAM, DAILY
     Route: 065
  3. VINCRISTINE [Suspect]
     Active Substance: VINCRISTINE
     Indication: Lymphangioma
     Dosage: 0.05 MILLIGRAM/KILOGRAM, WEEKLY
     Route: 065

REACTIONS (1)
  - Condition aggravated [Unknown]
